FAERS Safety Report 9012818 (Version 1)
Quarter: 2013Q1

REPORT INFORMATION
  Report Type: Spontaneous
  Country: PT (occurrence: PT)
  Receive Date: 20130114
  Receipt Date: 20130114
  Transmission Date: 20140127
  Serious: Yes (Other)
  Sender: FDA-Public Use
  Company Number: PT-ABBOTT-13P-130-1035205-00

PATIENT
  Age: 81 Year
  Sex: Female
  Weight: 59 kg

DRUGS (3)
  1. SUPRALIP [Suspect]
     Indication: HYPERTRIGLYCERIDAEMIA
     Dosage: AT NIGHT
     Route: 048
     Dates: start: 20121031, end: 20121104
  2. LERCANIDIPINE [Concomitant]
     Indication: HYPERTENSION
  3. LOSARTAN+HYDROCHLOROTHIAZIDE [Concomitant]
     Indication: HYPERTENSION

REACTIONS (4)
  - Malaise [Recovered/Resolved]
  - Abdominal distension [Recovered/Resolved]
  - Nausea [Recovered/Resolved]
  - Abdominal pain upper [Recovered/Resolved]
